FAERS Safety Report 9125133 (Version 1)
Quarter: 2013Q1

REPORT INFORMATION
  Report Type: Spontaneous
  Country: US (occurrence: US)
  Receive Date: 20130121
  Receipt Date: 20130121
  Transmission Date: 20140127
  Serious: Yes (Other)
  Sender: FDA-Public Use
  Company Number: PHHY2013US004850

PATIENT
  Age: 14 Year
  Sex: Female
  Weight: 56.4 kg

DRUGS (1)
  1. VANCOMYCIN [Suspect]

REACTIONS (2)
  - Red man syndrome [Unknown]
  - Drug intolerance [Unknown]
